FAERS Safety Report 4765219-9 (Version None)
Quarter: 2005Q3

REPORT INFORMATION
  Report Type: 
  Country: None (occurrence: None)
  Receive Date: 20050906
  Receipt Date: 20050824
  Transmission Date: 20060218
  Serious: Yes (Disabling)
  Sender: FDA-Public Use
  Company Number: 2005120469

PATIENT
  Age: 54 Year
  Sex: Male

DRUGS (1)
  1. GABAPENTIN [Suspect]
     Indication: ILL-DEFINED DISORDER
     Dosage: (300 MG), ORAL
     Route: 048
     Dates: start: 20050706, end: 20050805

REACTIONS (3)
  - ASTHENIA [None]
  - DYSKINESIA [None]
  - FALL [None]
